FAERS Safety Report 6368333-X (Version None)
Quarter: 2009Q3

REPORT INFORMATION
  Report Type: 
  Country: None (occurrence: None)
  Receive Date: 20090909
  Receipt Date: 20090604
  Transmission Date: 20100115
  Serious: No
  Sender: FDA-Public Use
  Company Number: 000992

PATIENT
  Age: 65 Year
  Sex: Male

DRUGS (1)
  1. ROTIGOTINE [Suspect]
     Indication: PARKINSON'S DISEASE
     Dosage: (6 MG QD TRANSDERMAL)
     Route: 062
     Dates: start: 20080101

REACTIONS (1)
  - DRUG INEFFECTIVE [None]
